FAERS Safety Report 12665931 (Version 1)
Quarter: 2016Q3

REPORT INFORMATION
  Report Type: Spontaneous
  Country: US (occurrence: US)
  Receive Date: 20160818
  Receipt Date: 20160818
  Transmission Date: 20161109
  Serious: No
  Sender: FDA-Public Use
  Company Number: US-ALLERGAN-1664521US

PATIENT
  Age: 29 Year
  Sex: Female

DRUGS (4)
  1. BOTOX COSMETIC [Suspect]
     Active Substance: ONABOTULINUMTOXINA
     Indication: SKIN WRINKLING
     Dosage: UNK, SINGLE
     Route: 030
  2. JUVEDERM [Concomitant]
     Active Substance: HYALURONIC ACID
     Indication: PRODUCT USED FOR UNKNOWN INDICATION
  3. KYBELLA [Suspect]
     Active Substance: DEOXYCHOLIC ACID
     Indication: FAT TISSUE INCREASED
     Dosage: UNK
     Route: 058
     Dates: start: 20151120, end: 20151120
  4. SCULPTRA [Concomitant]
     Active Substance: POLYLACTIDE, L-
     Indication: PRODUCT USED FOR UNKNOWN INDICATION

REACTIONS (20)
  - Neck injury [Not Recovered/Not Resolved]
  - Acne [Recovered/Resolved]
  - Feeding disorder [Recovered/Resolved]
  - Tooth fracture [Recovered/Resolved]
  - Lipoatrophy [Not Recovered/Not Resolved]
  - Hypokinesia [Recovered/Resolved]
  - Dysphagia [Unknown]
  - Face injury [Not Recovered/Not Resolved]
  - Chills [Recovered/Resolved]
  - Panic reaction [Recovered/Resolved]
  - Pain [Not Recovered/Not Resolved]
  - Dyskinesia [Recovered/Resolved]
  - Visual impairment [Recovered/Resolved]
  - Dry skin [Unknown]
  - Insomnia [Recovered/Resolved]
  - Presyncope [Recovered/Resolved]
  - Facial paresis [Not Recovered/Not Resolved]
  - Joint dislocation [Recovered/Resolved]
  - Anxiety [Not Recovered/Not Resolved]
  - Syncope [Recovered/Resolved]

NARRATIVE: CASE EVENT DATE: 201511
